FAERS Safety Report 9316809 (Version 1)
Quarter: 2013Q2

REPORT INFORMATION
  Report Type: Spontaneous
  Country: US (occurrence: None)
  Receive Date: 20130528
  Receipt Date: 20130528
  Transmission Date: 20140414
  Serious: Yes (Death, Hospitalization)
  Sender: FDA-Public Use
  Company Number: None

PATIENT
  Age: 11 Year
  Sex: Male
  Weight: 31.2 kg

DRUGS (8)
  1. CYTARABINE [Suspect]
     Dates: end: 20130513
  2. ONCASPAR [Suspect]
     Dates: end: 20130517
  3. THIOGUANINE [Suspect]
     Dates: end: 20130515
  4. VINCRISTINE SULFATE [Suspect]
     Dates: end: 20130517
  5. CYCLOPHOSPHAMIDE [Suspect]
     Dates: end: 20130503
  6. DEXAMETHASONE [Suspect]
     Dates: end: 20130418
  7. DOXORUBICIN HYDROCHLORIDE [Suspect]
     Dates: end: 20130412
  8. METHOTREXATE [Suspect]
     Dates: end: 20130510

REACTIONS (8)
  - Septic shock [None]
  - Pneumonia klebsiella [None]
  - Streptococcal infection [None]
  - Culture positive [None]
  - Haemodynamic instability [None]
  - Lactic acidosis [None]
  - Renal failure [None]
  - Hydrocephalus [None]
